FAERS Safety Report 6267976-1 (Version None)
Quarter: 2009Q3

REPORT INFORMATION
  Report Type: 
  Country: None (occurrence: None)
  Receive Date: 20090713
  Receipt Date: 20090630
  Transmission Date: 20100115
  Serious: Yes (Hospitalization)
  Sender: FDA-Public Use
  Company Number: A-NJ2009-25107

PATIENT
  Age: 86 Year
  Sex: Male

DRUGS (2)
  1. TRACLEER [Suspect]
     Indication: PULMONARY ARTERIAL HYPERTENSION
     Dosage: 125 MG, BID, ORAL; 62.5 MG, BID,ORAL
     Route: 048
     Dates: start: 20090323, end: 20090422
  2. TRACLEER [Suspect]
     Indication: PULMONARY ARTERIAL HYPERTENSION
     Dosage: 125 MG, BID, ORAL; 62.5 MG, BID,ORAL
     Route: 048
     Dates: start: 20090423

REACTIONS (4)
  - BLOOD BILIRUBIN INCREASED [None]
  - CHEST PAIN [None]
  - DIVERTICULITIS [None]
  - PNEUMONIA [None]
